FAERS Safety Report 22624382 (Version 1)
Quarter: 2023Q2

REPORT INFORMATION
  Report Type: Spontaneous
  Country: GB (occurrence: GB)
  Receive Date: 20230621
  Receipt Date: 20230621
  Transmission Date: 20230722
  Serious: No
  Sender: FDA-Public Use
  Company Number: GB-PFIZER INC-PV202300103036

PATIENT
  Age: 5 Year
  Sex: Female

DRUGS (1)
  1. GENOTROPIN [Suspect]
     Active Substance: SOMATROPIN
     Dosage: 0.7 MG, 1X/DAY
     Route: 058

REACTIONS (3)
  - Device mechanical issue [Unknown]
  - Device use issue [Unknown]
  - Product prescribing error [Unknown]
